FAERS Safety Report 6163307-6 (Version None)
Quarter: 2009Q2

REPORT INFORMATION
  Report Type: 
  Country: None (occurrence: None)
  Receive Date: 20090422
  Receipt Date: 20090420
  Transmission Date: 20091009
  Serious: Yes (Other)
  Sender: FDA-Public Use
  Company Number: ES-BRISTOL-MYERS SQUIBB COMPANY-14545206

PATIENT
  Age: 83 Year
  Sex: Male

DRUGS (7)
  1. METFORMIN HCL [Suspect]
     Indication: DIABETES MELLITUS
  2. ACENOCOUMAROL [Concomitant]
  3. DIGOXIN [Concomitant]
  4. TORASEMIDE [Concomitant]
  5. IRBESARTAN [Concomitant]
  6. ATENOLOL [Concomitant]
  7. SIMVASTATIN [Concomitant]

REACTIONS (4)
  - CARBOHYDRATE ANTIGEN 19-9 INCREASED [None]
  - GASTROINTESTINAL DISORDER [None]
  - HEPATOTOXICITY [None]
  - SERUM FERRITIN INCREASED [None]
